FAERS Safety Report 20578997 (Version 1)
Quarter: 2022Q1

REPORT INFORMATION
  Report Type: Spontaneous
  Country: JP (occurrence: JP)
  Receive Date: 20220310
  Receipt Date: 20220310
  Transmission Date: 20220423
  Serious: Yes (Other)
  Sender: FDA-Public Use
  Company Number: JP-PFIZER INC-202200342813

PATIENT
  Age: 7 Decade
  Sex: Male

DRUGS (2)
  1. BEVACIZUMAB [Suspect]
     Active Substance: BEVACIZUMAB
     Indication: Hepatocellular carcinoma
     Dosage: UNK
  2. ATEZOLIZUMAB [Suspect]
     Active Substance: ATEZOLIZUMAB
     Indication: Hepatocellular carcinoma
     Dosage: UNK

REACTIONS (6)
  - Varices oesophageal [Recovering/Resolving]
  - Oesophageal varices haemorrhage [Recovering/Resolving]
  - Splenomegaly [Unknown]
  - Condition aggravated [Recovering/Resolving]
  - Impaired healing [Unknown]
  - Off label use [Unknown]
